FAERS Safety Report 22320195 (Version 1)
Quarter: 2023Q2

REPORT INFORMATION
  Report Type: Other
  Country: IN (occurrence: None)
  Receive Date: 20230515
  Receipt Date: 20230515
  Transmission Date: 20230721
  Serious: Yes (Other)
  Sender: FDA-Public Use
  Company Number: IN-ROCHE-3280537

PATIENT
  Age: 57 Year
  Sex: Female

DRUGS (1)
  1. KADCYLA [Suspect]
     Active Substance: ADO-TRASTUZUMAB EMTANSINE
     Indication: Breast cancer metastatic
     Route: 042
     Dates: start: 20220902

REACTIONS (6)
  - Weight increased [Unknown]
  - Hypothyroidism [Unknown]
  - Varicose vein [Unknown]
  - Arthralgia [Unknown]
  - Pain in extremity [Unknown]
  - Disease progression [Unknown]
